FAERS Safety Report 4442741-6 (Version None)
Quarter: 2004Q3

REPORT INFORMATION
  Report Type: 
  Country: None (occurrence: None)
  Receive Date: 20040903
  Receipt Date: 20040716
  Transmission Date: 20050211
  Serious: Yes (Other)
  Sender: FDA-Public Use
  Company Number: 2004UW12460

PATIENT
  Age: 49 Year
  Sex: Female
  Weight: 66.588 kg

DRUGS (4)
  1. CRESTOR [Suspect]
     Indication: BLOOD CHOLESTEROL INCREASED
     Dosage: 10 MG QD PO
     Route: 048
     Dates: start: 20040601, end: 20040601
  2. CRESTOR [Suspect]
     Indication: BLOOD CHOLESTEROL INCREASED
     Dosage: 1 DF QOD PO
     Route: 048
     Dates: start: 20040601
  3. EFFEXOR [Concomitant]
  4. TYLENOL [Concomitant]

REACTIONS (3)
  - HEADACHE [None]
  - MOUTH ULCERATION [None]
  - PULSE PRESSURE INCREASED [None]
